FAERS Safety Report 10816434 (Version 1)
Quarter: 2015Q1

REPORT INFORMATION
  Report Type: Spontaneous
  Country: BE (occurrence: BE)
  Receive Date: 20150218
  Receipt Date: 20150218
  Transmission Date: 20150721
  Serious: Yes (Other)
  Sender: FDA-Public Use
  Company Number: BE-TEVA-541203ISR

PATIENT

DRUGS (7)
  1. DILTIAZEM [Concomitant]
     Active Substance: DILTIAZEM
     Route: 065
  2. BUDESONIDE. [Concomitant]
     Active Substance: BUDESONIDE
     Route: 065
  3. LOPERAMIDE [Suspect]
     Active Substance: LOPERAMIDE
     Indication: HYPERTENSION
     Route: 065
  4. MOXIFLOXACIN [Interacting]
     Active Substance: MOXIFLOXACIN
     Route: 065
  5. SUNITINIB [Interacting]
     Active Substance: SUNITINIB
     Indication: METASTATIC RENAL CELL CARCINOMA
     Route: 065
  6. DILTIAZEM [Concomitant]
     Active Substance: DILTIAZEM
     Route: 065
  7. ZOLPIDEM [Concomitant]
     Active Substance: ZOLPIDEM\ZOLPIDEM TARTRATE
     Route: 065

REACTIONS (4)
  - Electrocardiogram QT prolonged [Unknown]
  - Hypertension [Unknown]
  - Drug interaction [Unknown]
  - Diarrhoea [Unknown]
